FAERS Safety Report 13430783 (Version 1)
Quarter: 2017Q2

REPORT INFORMATION
  Report Type: Spontaneous
  Country: TR (occurrence: TR)
  Receive Date: 20170412
  Receipt Date: 20170412
  Transmission Date: 20170830
  Serious: Yes (Other)
  Sender: FDA-Public Use
  Company Number: TR-ROCHE-1918421

PATIENT
  Age: 48 Year
  Sex: Female

DRUGS (1)
  1. XOLAIR [Suspect]
     Active Substance: OMALIZUMAB
     Indication: ASTHMA
     Route: 058
     Dates: start: 20170110

REACTIONS (5)
  - Skin discolouration [Recovered/Resolved]
  - Hypotension [Recovered/Resolved]
  - Rash generalised [Recovered/Resolved]
  - Cough [Unknown]
  - Cyanosis [Recovered/Resolved]

NARRATIVE: CASE EVENT DATE: 20170210
